FAERS Safety Report 8554722-1 (Version None)
Quarter: 2012Q3

REPORT INFORMATION
  Report Type: 
  Country: None (occurrence: None)
  Receive Date: 20120731
  Receipt Date: 20120726
  Transmission Date: 20120928
  Serious: Yes (Other)
  Sender: FDA-Public Use
  Company Number: PHEH2012US013948

PATIENT
  Sex: Male
  Weight: 176.87 kg

DRUGS (23)
  1. BICALUTAMIDE [Concomitant]
     Dosage: 50 MG, DAILY
     Route: 048
  2. FLOMAX [Concomitant]
     Dosage: 0.4 MG, DAILY
     Route: 048
  3. ZOMETA [Suspect]
     Dosage: 4 MG, QMO
     Route: 042
     Dates: start: 20120710
  4. AVODART [Concomitant]
     Dosage: 0.5 MG, DAILY
     Route: 048
  5. NAPROSYN [Concomitant]
     Route: 048
     Dates: start: 20120601
  6. ZOMETA [Suspect]
     Indication: METASTASES TO BONE
     Dosage: 4 MG, EVERY 4 WEEK
     Route: 042
     Dates: start: 20120613
  7. ZOMETA [Suspect]
     Dosage: 4 MG, EVERY 4 WEEK
     Route: 042
     Dates: end: 20120711
  8. COLECALCIFEROL [Concomitant]
     Dosage: 50000 U, QW
     Route: 048
  9. LOTREL [Concomitant]
     Dosage: 1 DF, UNK
     Route: 048
  10. FLONASE [Concomitant]
  11. MAGNESIUM [Concomitant]
  12. VITAMIN E [Concomitant]
     Dosage: 400 U, DAILY
     Route: 048
  13. ASCORBIC ACID [Concomitant]
     Dosage: 1 DF, UNK
     Route: 048
  14. VITAMIN B6 [Concomitant]
  15. LASIX [Concomitant]
     Dosage: 20 MG, BID
     Route: 048
  16. OXYGEN [Concomitant]
  17. KETOROLAC TROMETHAMINE [Concomitant]
     Dosage: 30 MG, PUSH OVER 6 MINUTES IN NS 10 ML
     Route: 042
     Dates: start: 20120711, end: 20120711
  18. SPIRIVA [Concomitant]
     Dosage: 18 UG, DAILY
  19. ASPIRIN [Concomitant]
     Dosage: 81 MG, DAILY
     Route: 048
  20. NAPROXEN [Concomitant]
  21. ASPIRIN [Concomitant]
  22. ZINC SULFATE [Concomitant]
  23. GINKGO BILOBA [Concomitant]
     Dosage: 2 DF, UNK
     Route: 048

REACTIONS (8)
  - CHEST DISCOMFORT [None]
  - INFLUENZA LIKE ILLNESS [None]
  - PLEURISY [None]
  - BACK PAIN [None]
  - VISCERAL PAIN [None]
  - CHEST PAIN [None]
  - HYPERTENSION [None]
  - CREATININE RENAL CLEARANCE INCREASED [None]
